FAERS Safety Report 8503462-3 (Version None)
Quarter: 2012Q3

REPORT INFORMATION
  Report Type: 
  Country: None (occurrence: None)
  Receive Date: 20120711
  Receipt Date: 20120703
  Transmission Date: 20120928
  Serious: Yes (Hospitalization, Disabling)
  Sender: FDA-Public Use
  Company Number: US-GLAXOSMITHKLINE-A0983216A

PATIENT
  Age: 53 Year
  Sex: Female

DRUGS (2)
  1. WELLBUTRIN XL [Suspect]
     Indication: DEPRESSION
     Route: 048
     Dates: start: 20060101, end: 20110101
  2. LAMICTAL [Suspect]
     Indication: BIPOLAR DISORDER
     Dosage: 400MG IN THE MORNING
     Route: 048

REACTIONS (6)
  - IMPAIRED DRIVING ABILITY [None]
  - CONVULSION [None]
  - BIPOLAR DISORDER [None]
  - DEPRESSION [None]
  - INSOMNIA [None]
  - DRUG HYPERSENSITIVITY [None]
